FAERS Safety Report 6709297-6 (Version None)
Quarter: 2010Q2

REPORT INFORMATION
  Report Type: 
  Country: None (occurrence: None)
  Receive Date: 20100504
  Receipt Date: 20100428
  Transmission Date: 20101027
  Serious: Yes (Other)
  Sender: FDA-Public Use
  Company Number: US-ELI_LILLY_AND_COMPANY-US201003003856

PATIENT
  Sex: Female

DRUGS (5)
  1. HUMALOG MIX 75/25 [Suspect]
     Indication: TYPE 2 DIABETES MELLITUS
     Dosage: 45 U, 3/D
  2. LEVEMIR [Concomitant]
  3. METHYLDOPA [Concomitant]
  4. PRENATAL VITAMINS                  /01549301/ [Concomitant]
  5. SYNTHROID [Concomitant]
     Indication: HYPOTHYROIDISM
     Dosage: 0.1 MG, UNK
     Route: 048
     Dates: start: 20040408

REACTIONS (1)
  - ABORTION SPONTANEOUS [None]
